FAERS Safety Report 14263811 (Version 1)
Quarter: 2017Q4

REPORT INFORMATION
  Report Type: Spontaneous
  Country: RO (occurrence: RO)
  Receive Date: 20171208
  Receipt Date: 20171208
  Transmission Date: 20180321
  Serious: Yes (Other)
  Sender: FDA-Public Use
  Company Number: RO-ASTRAZENECA-2017SE82341

PATIENT
  Sex: Female

DRUGS (2)
  1. LYNPARZA [Suspect]
     Active Substance: OLAPARIB
     Dosage: UNKNOWN
     Route: 048
  2. LYNPARZA [Suspect]
     Active Substance: OLAPARIB
     Route: 048
     Dates: end: 201709

REACTIONS (10)
  - Irritability [Unknown]
  - Fatigue [Unknown]
  - Insomnia [Unknown]
  - Malignant neoplasm progression [Unknown]
  - Coma [Unknown]
  - Decreased appetite [Unknown]
  - Swollen tongue [Unknown]
  - Tremor [Unknown]
  - Syncope [Unknown]
  - Anaemia [Unknown]

NARRATIVE: CASE EVENT DATE: 201708
